FAERS Safety Report 8135259-0 (Version None)
Quarter: 2012Q1

REPORT INFORMATION
  Report Type: 
  Country: None (occurrence: None)
  Receive Date: 20120214
  Receipt Date: 20110520
  Transmission Date: 20120608
  Serious: Yes (Other)
  Sender: FDA-Public Use
  Company Number: NL-ROCHE-1032371

PATIENT

DRUGS (3)
  1. AVASTIN [Suspect]
     Indication: COLORECTAL CANCER
     Route: 042
  2. OXALIPLATIN [Suspect]
     Indication: COLORECTAL CANCER
  3. XELODA [Suspect]
     Indication: COLORECTAL CANCER

REACTIONS (4)
  - HYPERTENSION [None]
  - EMBOLISM [None]
  - PALMAR-PLANTAR ERYTHRODYSAESTHESIA SYNDROME [None]
  - THROMBOSIS [None]
